FAERS Safety Report 13449952 (Version 1)
Quarter: 2017Q2

REPORT INFORMATION
  Report Type: Spontaneous
  Country: US (occurrence: US)
  Receive Date: 20170417
  Receipt Date: 20170417
  Transmission Date: 20170830
  Serious: No
  Sender: FDA-Public Use
  Company Number: US-BION-20160340

PATIENT
  Age: 58 Year
  Sex: Male
  Weight: 145.15 kg

DRUGS (14)
  1. ZORETLTO [Concomitant]
  2. SIMVISTATIN [Concomitant]
     Active Substance: SIMVASTATIN
  3. CURAMED [Concomitant]
  4. BOSSMED [Concomitant]
  5. MULTIVITAMIN [Concomitant]
     Active Substance: VITAMINS
  6. METOPROLOL. [Concomitant]
     Active Substance: METOPROLOL
  7. ALEVE [Suspect]
     Active Substance: NAPROXEN SODIUM
     Indication: BACK PAIN
     Dosage: 8 DF ONCE DAILY
     Route: 048
  8. LISINOPRIL. [Concomitant]
     Active Substance: LISINOPRIL
  9. OXYCODONE [Concomitant]
     Active Substance: OXYCODONE
  10. TORSEMIDE. [Concomitant]
     Active Substance: TORSEMIDE
  11. ASPIRIN. [Concomitant]
     Active Substance: ASPIRIN
  12. ALLPURENIL [Concomitant]
  13. LORAZIPAM [Concomitant]
  14. MAGNESIUM [Concomitant]
     Active Substance: MAGNESIUM

REACTIONS (2)
  - Intentional overdose [Unknown]
  - Incorrect drug administration duration [Unknown]
